FAERS Safety Report 7523112-2 (Version None)
Quarter: 2011Q2

REPORT INFORMATION
  Report Type: 
  Country: None (occurrence: None)
  Receive Date: 20110603
  Receipt Date: 20110525
  Transmission Date: 20111010
  Serious: Yes (Hospitalization, Other)
  Sender: FDA-Public Use
  Company Number: MX-SANOFI-AVENTIS-2011SA033024

PATIENT
  Age: 57 Year
  Sex: Female

DRUGS (4)
  1. METFORMIN HCL [Concomitant]
     Indication: TYPE 2 DIABETES MELLITUS
     Route: 048
     Dates: start: 20100101
  2. INSULIN GLARGINE [Suspect]
     Indication: TYPE 2 DIABETES MELLITUS
     Dosage: 40 IU SC
     Route: 058
     Dates: start: 20100101, end: 20110516
  3. GABAPENTIN [Concomitant]
     Indication: DIABETIC NEUROPATHY
     Route: 048
     Dates: start: 20110522
  4. INSULIN GLARGINE [Suspect]
     Route: 058
     Dates: start: 20110522

REACTIONS (5)
  - PAIN [None]
  - HYPERGLYCAEMIA [None]
  - DIABETIC NEUROPATHY [None]
  - PARAESTHESIA [None]
  - DYSAESTHESIA [None]
